FAERS Safety Report 9189235 (Version 1)
Quarter: 2013Q1

REPORT INFORMATION
  Report Type: Spontaneous
  Country: US (occurrence: None)
  Receive Date: 20130321
  Receipt Date: 20130321
  Transmission Date: 20140127
  Serious: Yes (Life-Threatening, Hospitalization)
  Sender: FDA-Public Use
  Company Number: None

PATIENT
  Age: 89 Year
  Sex: Female
  Weight: 59.65 kg

DRUGS (1)
  1. XARELTO 15MG JANSSEN [Suspect]
     Indication: ATRIAL FIBRILLATION
     Dosage: 15MG DAILY PO
     Route: 048

REACTIONS (1)
  - Haemorrhagic stroke [None]
